FAERS Safety Report 10257185 (Version 1)
Quarter: 2014Q2

REPORT INFORMATION
  Report Type: Spontaneous
  Country: US (occurrence: None)
  Receive Date: 20140623
  Receipt Date: 20140623
  Transmission Date: 20141212
  Serious: Yes (Other)
  Sender: FDA-Public Use
  Company Number: None

PATIENT
  Age: 41 Year
  Sex: Female
  Weight: 102.51 kg

DRUGS (3)
  1. DULOXETINE [Suspect]
     Indication: ANXIETY
     Dosage: ONE CAPSULE AT BEDTIME TAKEN BY MOUTH
     Route: 048
     Dates: start: 20140621, end: 20140622
  2. DULOXETINE [Suspect]
     Indication: DEPRESSION
     Dosage: ONE CAPSULE AT BEDTIME TAKEN BY MOUTH
     Route: 048
     Dates: start: 20140621, end: 20140622
  3. DULOXETINE [Suspect]
     Indication: PAIN
     Dosage: ONE CAPSULE AT BEDTIME TAKEN BY MOUTH
     Route: 048
     Dates: start: 20140621, end: 20140622

REACTIONS (10)
  - Somnolence [None]
  - Mental impairment [None]
  - Muscle spasms [None]
  - Dyskinesia [None]
  - Musculoskeletal disorder [None]
  - Restless legs syndrome [None]
  - Posture abnormal [None]
  - Breath sounds abnormal [None]
  - Feeling abnormal [None]
  - Product substitution issue [None]
